FAERS Safety Report 8066919-8 (Version None)
Quarter: 2012Q1

REPORT INFORMATION
  Report Type: 
  Country: None (occurrence: None)
  Receive Date: 20120124
  Receipt Date: 20120118
  Transmission Date: 20120608
  Serious: Yes (Congenital Anomaly)
  Sender: FDA-Public Use
  Company Number: PHHY2012GB001244

PATIENT
  Sex: Male
  Weight: 4 kg

DRUGS (1)
  1. SERTRALINE HYDROCHLORIDE [Suspect]
     Dosage: UNK
     Route: 064

REACTIONS (2)
  - CLEFT PALATE [None]
  - FOETAL EXPOSURE DURING PREGNANCY [None]
